FAERS Safety Report 23701839 (Version 1)
Quarter: 2024Q2

REPORT INFORMATION
  Report Type: Spontaneous
  Country: US (occurrence: US)
  Receive Date: 20240403
  Receipt Date: 20240403
  Transmission Date: 20240716
  Serious: Yes (Other)
  Sender: FDA-Public Use
  Company Number: US-PFIZER INC-202400076084

PATIENT
  Age: 56 Year
  Sex: Male
  Weight: 64.86 kg

DRUGS (1)
  1. CIBINQO [Suspect]
     Active Substance: ABROCITINIB
     Indication: Eczema
     Dosage: 100 MG

REACTIONS (6)
  - Immunodeficiency [Unknown]
  - Bronchitis bacterial [Unknown]
  - Haemoptysis [Unknown]
  - Nasal herpes [Unknown]
  - Oral herpes [Unknown]
  - Cold sweat [Unknown]
